FAERS Safety Report 5146075-6 (Version None)
Quarter: 2006Q4

REPORT INFORMATION
  Report Type: 
  Country: None (occurrence: None)
  Receive Date: 20061102
  Receipt Date: 20061019
  Transmission Date: 20070319
  Serious: Yes (Death, Life-Threatening)
  Sender: FDA-Public Use
  Company Number: 2006129988

PATIENT

DRUGS (1)
  1. SULFASALAZINE [Suspect]
     Indication: PUSTULAR PSORIASIS
     Dosage: 2000 MG (500 MG, 2 IN 1 D), ORAL
     Route: 048

REACTIONS (10)
  - ASPIRATION [None]
  - DRUG EXPOSURE DURING PREGNANCY [None]
  - DYSPLASIA [None]
  - FOETAL GROWTH RETARDATION [None]
  - HAEMORRHAGE [None]
  - INFLAMMATION [None]
  - NERVOUS SYSTEM DISORDER [None]
  - PLACENTAL INSUFFICIENCY [None]
  - PULMONARY HAEMORRHAGE [None]
  - STILLBIRTH [None]
